FAERS Safety Report 7800460-X (Version None)
Quarter: 2011Q4

REPORT INFORMATION
  Report Type: 
  Country: None (occurrence: None)
  Receive Date: 20111006
  Receipt Date: 20110922
  Transmission Date: 20120403
  Serious: Yes (Hospitalization, Other)
  Sender: FDA-Public Use
  Company Number: US-PFIZER INC-2011231358

PATIENT

DRUGS (8)
  1. ZITHROMAX [Suspect]
     Indication: EAR INFECTION
  2. YAZ [Concomitant]
     Indication: CONTRACEPTION
     Dosage: UNK UNK, QD
     Route: 064
     Dates: start: 20091126, end: 20100112
  3. ETANERCEPT [Suspect]
     Dosage: 50 MG, WEEKLY
     Route: 064
     Dates: start: 20091230, end: 20100114
  4. PRENATAL VITAMINS [Concomitant]
     Dosage: UNK UNK, QD
     Route: 064
     Dates: start: 20091230, end: 20100825
  5. TYLENOL-500 [Concomitant]
     Indication: HEADACHE
  6. TYLENOL-500 [Concomitant]
     Indication: PSORIATIC ARTHROPATHY
     Dosage: UNK UNK, PRN
     Route: 064
     Dates: start: 20100114, end: 20100430
  7. FISH OIL [Concomitant]
     Dosage: UNK UNK, QD
     Route: 064
     Dates: start: 20100416
  8. TERBUTALINE [Concomitant]
     Indication: PREMATURE LABOUR
     Dosage: 30 MG, QD
     Route: 064
     Dates: start: 20100506

REACTIONS (7)
  - RESPIRATORY ARREST [None]
  - MATERNAL EXPOSURE DURING PREGNANCY [None]
  - RESPIRATORY SYNCYTIAL VIRUS INFECTION [None]
  - EAR INFECTION [None]
  - BRONCHOMALACIA [None]
  - BURNS SECOND DEGREE [None]
  - CYANOSIS [None]
